FAERS Safety Report 5512556-6 (Version None)
Quarter: 2007Q4

REPORT INFORMATION
  Report Type: 
  Country: None (occurrence: None)
  Receive Date: 20071112
  Receipt Date: 20071012
  Transmission Date: 20080405
  Serious: No
  Sender: FDA-Public Use
  Company Number: A0684357A

PATIENT
  Age: 72 Year
  Sex: Male
  Weight: 120 kg

DRUGS (6)
  1. AVANDAMET [Suspect]
     Route: 048
     Dates: start: 20050101, end: 20070919
  2. FUROSEMIDE [Concomitant]
  3. PROSCAR [Concomitant]
  4. BISOPROLOL FUMARATE [Concomitant]
  5. LANTUS [Concomitant]
  6. JANUMET [Concomitant]
     Indication: DRUG USE FOR UNKNOWN INDICATION
     Route: 065
     Dates: start: 20070101

REACTIONS (2)
  - BLOOD PRESSURE FLUCTUATION [None]
  - HYPERTENSION [None]
